FAERS Safety Report 23722104 (Version 1)
Quarter: 2024Q2

REPORT INFORMATION
  Report Type: Spontaneous
  Country: CA (occurrence: CA)
  Receive Date: 20240409
  Receipt Date: 20240409
  Transmission Date: 20240715
  Serious: Yes (Hospitalization, Other)
  Sender: FDA-Public Use
  Company Number: CA-SANDOZ-SDZ2024CA037160

PATIENT
  Age: 3 Decade
  Sex: Female

DRUGS (5)
  1. REMICADE [Suspect]
     Active Substance: INFLIXIMAB
     Dosage: UNK
     Route: 042
  2. REMICADE [Suspect]
     Active Substance: INFLIXIMAB
     Indication: Colitis ulcerative
     Dosage: UNK 1 EVERY 6 WEEKS
     Route: 042
  3. REMICADE [Suspect]
     Active Substance: INFLIXIMAB
     Indication: Colitis ulcerative
     Dosage: 5 MG/KG  1 EVERY 8 WEEKS
     Route: 042
  4. VANCOMYCIN [Suspect]
     Active Substance: VANCOMYCIN
     Indication: Product used for unknown indication
     Dosage: UNK
     Route: 065
  5. PREDNISONE [Concomitant]
     Active Substance: PREDNISONE
     Indication: Product used for unknown indication
     Dosage: UNK
     Route: 065

REACTIONS (7)
  - Blood iron decreased [Not Recovered/Not Resolved]
  - Clostridium difficile infection [Not Recovered/Not Resolved]
  - Colitis ulcerative [Not Recovered/Not Resolved]
  - Disturbance in attention [Not Recovered/Not Resolved]
  - Insomnia [Not Recovered/Not Resolved]
  - Tonsillar disorder [Not Recovered/Not Resolved]
  - Off label use [Not Recovered/Not Resolved]
